FAERS Safety Report 8224733-4 (Version None)
Quarter: 2012Q1

REPORT INFORMATION
  Report Type: 
  Country: None (occurrence: None)
  Receive Date: 20120321
  Receipt Date: 20120314
  Transmission Date: 20120608
  Serious: Yes (Other)
  Sender: FDA-Public Use
  Company Number: PHHY2011US40215

PATIENT
  Sex: Male
  Weight: 82.313 kg

DRUGS (6)
  1. SIMVASTATIN [Concomitant]
  2. GILENYA [Suspect]
     Indication: MULTIPLE SCLEROSIS
     Dosage: 0.5 MG, QD
     Dates: start: 20110413
  3. AMINOPYRIDINE [Concomitant]
     Dosage: UNK
  4. SILODOSIN [Concomitant]
  5. AMANTADINE HCL [Concomitant]
  6. PROVIGIL [Concomitant]

REACTIONS (3)
  - LOSS OF CONSCIOUSNESS [None]
  - FATIGUE [None]
  - DIZZINESS [None]
